FAERS Safety Report 23860772 (Version 1)
Quarter: 2024Q2

REPORT INFORMATION
  Report Type: Spontaneous
  Country: CA (occurrence: CA)
  Receive Date: 20240516
  Receipt Date: 20240516
  Transmission Date: 20240716
  Serious: Yes (Other)
  Sender: FDA-Public Use
  Company Number: None

PATIENT
  Age: 62 Year
  Sex: Male

DRUGS (2)
  1. NORDITROPIN [Suspect]
     Active Substance: SOMATROPIN
     Indication: Growth hormone deficiency
     Dosage: 200 ?G, QD (THERAPY DURATION- 182)
     Route: 058
  2. NORDITROPIN [Suspect]
     Active Substance: SOMATROPIN
     Dosage: 100 ?G, QD
     Route: 058

REACTIONS (1)
  - Prostatic disorder [Unknown]
